FAERS Safety Report 8392526-3 (Version None)
Quarter: 2012Q2

REPORT INFORMATION
  Report Type: 
  Country: None (occurrence: None)
  Receive Date: 20120529
  Receipt Date: 20120521
  Transmission Date: 20120825
  Serious: Yes (Hospitalization)
  Sender: FDA-Public Use
  Company Number: US-MERCK-1205USA03812

PATIENT
  Age: 56 Year
  Sex: Male

DRUGS (15)
  1. FLEXERIL [Concomitant]
     Indication: PRODUCT USED FOR UNKNOWN INDICATION
     Route: 065
     Dates: start: 20111107
  2. DILAUDID [Concomitant]
     Indication: PRODUCT USED FOR UNKNOWN INDICATION
     Route: 065
     Dates: start: 20111001
  3. VELCADE [Suspect]
     Dosage: 1 UG/M2
     Route: 065
  4. COUMADIN [Concomitant]
     Indication: DEEP VEIN THROMBOSIS
     Route: 065
     Dates: start: 20111108
  5. GABAPENTIN [Concomitant]
     Indication: NEUROPATHY PERIPHERAL
     Route: 065
     Dates: start: 20111123
  6. ATENOLOL [Concomitant]
     Indication: HYPERTENSION
     Route: 065
  7. DECADRON [Suspect]
     Indication: MULTIPLE MYELOMA
     Dosage: D 1/2, 4/5, 8/9, 11/12 /21
     Route: 048
     Dates: start: 20111107
  8. REVLIMID [Suspect]
     Route: 048
     Dates: start: 20120101, end: 20120124
  9. COUMADIN [Concomitant]
     Indication: THROMBOSIS PROPHYLAXIS
     Route: 065
     Dates: start: 20111108
  10. DECADRON [Suspect]
     Dosage: DAYS 1, 4, 8, 11 FOR CYCLE 2 AND BEYOND
     Route: 048
  11. FLOMAX [Concomitant]
     Indication: PRODUCT USED FOR UNKNOWN INDICATION
     Route: 065
     Dates: start: 20111031
  12. OMEPRAZOLE [Concomitant]
     Indication: PRODUCT USED FOR UNKNOWN INDICATION
     Route: 065
     Dates: start: 20111107
  13. REVLIMID [Suspect]
     Indication: MULTIPLE MYELOMA
     Route: 048
     Dates: start: 20111108, end: 20120103
  14. VELCADE [Suspect]
     Indication: MULTIPLE MYELOMA
     Dosage: 1.4 UG/M2
     Route: 065
     Dates: start: 20111108
  15. ACYCLOVIR [Concomitant]
     Route: 065
     Dates: start: 20111107

REACTIONS (4)
  - DYSPNOEA [None]
  - PYREXIA [None]
  - GENERALISED OEDEMA [None]
  - WEIGHT INCREASED [None]
